FAERS Safety Report 7854932 (Version 2)
Quarter: 2020Q3

REPORT INFORMATION
  Report Type: Report from Study
  Country: US (occurrence: US)
  Receive Date: 20110314
  Receipt Date: 20110415
  Transmission Date: 20201105
  Serious: Yes (Hospitalization)
  Sender: FDA-Public Use
  Company Number: US-PFIZER INC-2011046734

PATIENT
  Age: 71 Year
  Sex: Male
  Weight: 92.7 kg

DRUGS (10)
  1. NEXIUM [Concomitant]
     Active Substance: ESOMEPRAZOLE MAGNESIUM
  2. ACTOS [Concomitant]
     Active Substance: PIOGLITAZONE HYDROCHLORIDE
  3. VYTORIN [Concomitant]
     Active Substance: EZETIMIBE\SIMVASTATIN
  4. TEMSIROLIMUS. [Suspect]
     Active Substance: TEMSIROLIMUS
     Indication: LIPOSARCOMA
     Dosage: 25 MG IV OVER 30?60 MINUTES ON DAYS 1,8, 15, AND 22
     Route: 042
     Dates: start: 20110202, end: 20110209
  5. SELUMETINIB. [Suspect]
     Active Substance: SELUMETINIB
     Indication: LIPOSARCOMA
     Dosage: 50 MG, 2X/DAY EVERY 28 HOURS
     Route: 048
     Dates: start: 20110202, end: 20110214
  6. MAXZIDE [Concomitant]
     Active Substance: HYDROCHLOROTHIAZIDE\TRIAMTERENE
  7. ALTACE [Concomitant]
     Active Substance: RAMIPRIL
  8. COREG [Concomitant]
     Active Substance: CARVEDILOL
  9. LEVOXYL [Concomitant]
     Active Substance: LEVOTHYROXINE SODIUM
  10. BYETTA [Concomitant]
     Active Substance: EXENATIDE

REACTIONS (1)
  - Syncope [Recovered/Resolved]

NARRATIVE: CASE EVENT DATE: 20110214
